FAERS Safety Report 7434970-4 (Version None)
Quarter: 2011Q2

REPORT INFORMATION
  Report Type: 
  Country: None (occurrence: None)
  Receive Date: 20110425
  Receipt Date: 20110411
  Transmission Date: 20111010
  Serious: Yes (Hospitalization, Other)
  Sender: FDA-Public Use
  Company Number: SE-JNJFOC-20110406089

PATIENT
  Age: 47 Year
  Sex: Female

DRUGS (2)
  1. LISTERINE [Suspect]
     Indication: DENTAL CARE
     Dosage: INTERMITTENTLY; 1 BOTTLE DAILY
     Route: 048
  2. ANTABUSE [Concomitant]
     Indication: ALCOHOL ABUSE
     Route: 065

REACTIONS (2)
  - DRUG ABUSE [None]
  - INCORRECT ROUTE OF DRUG ADMINISTRATION [None]
